FAERS Safety Report 4557870-6 (Version None)
Quarter: 2005Q1

REPORT INFORMATION
  Report Type: 
  Country: None (occurrence: None)
  Receive Date: 20050121
  Receipt Date: 20021223
  Transmission Date: 20050727
  Serious: Yes (Other)
  Sender: FDA-Public Use
  Company Number: US-BRISTOL-MYERS SQUIBB COMPANY-12145371

PATIENT
  Sex: Female

DRUGS (5)
  1. SERZONE [Suspect]
     Indication: DEPRESSION
     Route: 048
     Dates: start: 19980101, end: 20000101
  2. SERZONE [Suspect]
     Indication: ANXIETY
     Route: 048
     Dates: start: 19980101, end: 20000101
  3. ZOLOFT [Concomitant]
     Dates: start: 19990101
  4. PAXIL [Concomitant]
     Dates: start: 20000101
  5. CONTRACEPTIVE [Concomitant]
     Dates: start: 19980101, end: 19980101

REACTIONS (12)
  - ANXIETY [None]
  - CONVULSION [None]
  - EYE PAIN [None]
  - HALLUCINATION, VISUAL [None]
  - HEPATOCELLULAR DAMAGE [None]
  - INCREASED TENDENCY TO BRUISE [None]
  - NERVOUSNESS [None]
  - PYREXIA [None]
  - RASH [None]
  - SOMNOLENCE [None]
  - SUICIDAL IDEATION [None]
  - VISION BLURRED [None]
